FAERS Safety Report 11848480 (Version 4)
Quarter: 2016Q2

REPORT INFORMATION
  Report Type: Report from Study
  Country: US (occurrence: US)
  Receive Date: 20151218
  Receipt Date: 20160422
  Transmission Date: 20160815
  Serious: No
  Sender: FDA-Public Use
  Company Number: US-AMGEN-USASP2015132803

PATIENT
  Age: 56 Year
  Sex: Female

DRUGS (2)
  1. ENBREL [Suspect]
     Active Substance: ETANERCEPT
     Indication: PSORIASIS
  2. ENBREL [Suspect]
     Active Substance: ETANERCEPT
     Indication: RHEUMATOID ARTHRITIS
     Dosage: 50 MG, QWK
     Route: 065
     Dates: start: 2015

REACTIONS (13)
  - Vomiting [Unknown]
  - Joint swelling [Not Recovered/Not Resolved]
  - Injection site warmth [Unknown]
  - Injection site erythema [Recovered/Resolved]
  - Injection site macule [Recovered/Resolved]
  - Injection site pain [Unknown]
  - Incorrect product storage [Unknown]
  - Injection site extravasation [Unknown]
  - Underdose [Unknown]
  - Nausea [Unknown]
  - Injection site induration [Unknown]
  - Inappropriate schedule of drug administration [Unknown]
  - Injection site reaction [Unknown]

NARRATIVE: CASE EVENT DATE: 2015
